FAERS Safety Report 5360460-9 (Version None)
Quarter: 2007Q2

REPORT INFORMATION
  Report Type: 
  Country: None (occurrence: None)
  Receive Date: 20070614
  Receipt Date: 20070604
  Transmission Date: 20071010
  Serious: Yes (Death, Hospitalization, Disabling)
  Sender: FDA-Public Use
  Company Number: OSCN-PR-0705L-0210

PATIENT
  Age: 11 Year
  Sex: Male

DRUGS (25)
  1. OMNISCAN [Suspect]
     Indication: DRUG USE FOR UNKNOWN INDICATION
     Dosage: NR, SINGLE DOSE, I.V.
     Route: 042
  2. GADOPENTETATE DIMEGLUMINE (MAGNEVIST) [Concomitant]
  3. GADOVERSETAMIDE (OPTIMARK) [Concomitant]
  4. DOXORUBICIN HCL [Concomitant]
  5. METHOTREXATE [Concomitant]
  6. VINCRISTINE [Concomitant]
  7. MERCAPTOPURINE [Concomitant]
  8. FERROUS SULFATE [Concomitant]
  9. EPOGEN [Concomitant]
  10. CALCIUM CARBONATE [Concomitant]
  11. CALCITRIOL [Concomitant]
  12. SODIUM BICARBONATE [Concomitant]
  13. DACTINOMYCIN (ACTINOMYCIN D) [Concomitant]
  14. CYCLOPHOSPHAMIDE [Concomitant]
  15. IFOSFAMIDE [Concomitant]
  16. ETOPOSIDE [Concomitant]
  17. UNSPECIFIED CALCIUM SUPPLEMENTS [Concomitant]
  18. ERGOCALCIFEROL (VITAMIN D) [Concomitant]
  19. NEURONTIN [Concomitant]
  20. DEPAKOTE [Concomitant]
  21. AMITRIPTYLINE HCL [Concomitant]
  22. ASTRAMORPH PF (LOW DIALYSATE CALCIUM) [Concomitant]
  23. PAMIDRONATE DISODIUM (PAMIDRONATE) [Concomitant]
  24. CALCITONIN-SALMON [Concomitant]
  25. UNSPECIFIED STEROIDS [Concomitant]

REACTIONS (37)
  - BRADYCARDIA [None]
  - CALCINOSIS [None]
  - CARDIAC ARREST [None]
  - CARDIAC FAILURE [None]
  - COMPLICATIONS OF TRANSPLANTED KIDNEY [None]
  - CONTINUOUS HAEMODIAFILTRATION [None]
  - CONVULSION [None]
  - DISCOMFORT [None]
  - FIBROSIS [None]
  - HEADACHE [None]
  - HEPATIC CONGESTION [None]
  - HUNGRY BONE SYNDROME [None]
  - HYPERCALCAEMIA [None]
  - HYPERPARATHYROIDISM [None]
  - HYPOCALCAEMIA [None]
  - HYPOTENSION [None]
  - JOINT CONTRACTURE [None]
  - METAPLASIA [None]
  - MOBILITY DECREASED [None]
  - MUSCLE ATROPHY [None]
  - NECROBIOSIS [None]
  - NEPHROGENIC FIBROSING DERMOPATHY [None]
  - NODAL RHYTHM [None]
  - OPTIC NERVE DISORDER [None]
  - PAIN IN EXTREMITY [None]
  - PLEURAL FIBROSIS [None]
  - POST PROCEDURAL COMPLICATION [None]
  - PULMONARY CONGESTION [None]
  - PULMONARY FIBROSIS [None]
  - PULMONARY NECROSIS [None]
  - RENAL HAEMORRHAGE [None]
  - RENAL NECROSIS [None]
  - SUBCUTANEOUS NODULE [None]
  - TENDON DISORDER [None]
  - TREATMENT NONCOMPLIANCE [None]
  - ULCER [None]
  - XEROSIS [None]
